FAERS Safety Report 9605345 (Version 2)
Quarter: 2013Q4

REPORT INFORMATION
  Report Type: Spontaneous
  Country: GB (occurrence: GB)
  Receive Date: 20131008
  Receipt Date: 20131018
  Transmission Date: 20140711
  Serious: Yes (Hospitalization)
  Sender: FDA-Public Use
  Company Number: GB-TEVA-436134ISR

PATIENT
  Age: 51 Year
  Sex: Female
  Weight: 54.7 kg

DRUGS (6)
  1. CARBOPLATIN [Suspect]
     Indication: BREAST CANCER
     Dosage: 6AUC
     Route: 042
     Dates: start: 20100907
  2. DOCETAXEL [Suspect]
     Indication: BREAST CANCER
     Dosage: FORM :VIAL
     Route: 042
     Dates: start: 20100907
  3. BEVACIZUMAB [Suspect]
     Dosage: FORM :VIALS
     Route: 042
     Dates: start: 20100907
  4. TRASTUZUMAB [Suspect]
     Indication: BREAST CANCER
     Route: 042
     Dates: start: 20100907
  5. METOCLOPRAMIDE [Concomitant]
     Dates: start: 20100907
  6. DICLOFENAC [Concomitant]
     Dates: start: 20100915

REACTIONS (3)
  - Neutropenic infection [Recovered/Resolved]
  - Febrile neutropenia [Recovered/Resolved]
  - Dyspnoea [Recovered/Resolved]
